FAERS Safety Report 4948937-9 (Version None)
Quarter: 2006Q1

REPORT INFORMATION
  Report Type: 
  Country: None (occurrence: None)
  Receive Date: 20060316
  Receipt Date: 20060307
  Transmission Date: 20060701
  Serious: Yes (Death)
  Sender: FDA-Public Use
  Company Number: 163-20785-05110328

PATIENT
  Age: 85 Year
  Sex: Male

DRUGS (13)
  1. THALOMID [Suspect]
     Indication: MYELODYSPLASTIC SYNDROME
     Dosage: 50 MG, DAILY, ORAL; SEE IMAGE
     Route: 048
     Dates: start: 20050715, end: 20050814
  2. THALOMID [Suspect]
     Indication: REFRACTORY ANAEMIA
     Dosage: 50 MG, DAILY, ORAL; SEE IMAGE
     Route: 048
     Dates: start: 20050715, end: 20050814
  3. THALOMID [Suspect]
     Indication: MYELODYSPLASTIC SYNDROME
     Dosage: 50 MG, DAILY, ORAL; SEE IMAGE
     Route: 048
     Dates: start: 20050815, end: 20050901
  4. THALOMID [Suspect]
     Indication: REFRACTORY ANAEMIA
     Dosage: 50 MG, DAILY, ORAL; SEE IMAGE
     Route: 048
     Dates: start: 20050815, end: 20050901
  5. ACCOLATE [Concomitant]
  6. ALTACE [Concomitant]
  7. ALBUTEROL [Concomitant]
  8. FOLIC ACID [Concomitant]
  9. PYRIDOXINE (PYRIDOXINE) [Concomitant]
  10. ATROVENT [Concomitant]
  11. LASIX [Concomitant]
  12. XANAX [Concomitant]
  13. VICODIN [Concomitant]

REACTIONS (9)
  - AGEUSIA [None]
  - ANOREXIA [None]
  - CARDIAC DISORDER [None]
  - CONSTIPATION [None]
  - DRY MOUTH [None]
  - DYSPNOEA [None]
  - EYE DISCHARGE [None]
  - HYPOAESTHESIA [None]
  - RESPIRATORY DISORDER [None]
